FAERS Safety Report 8599130-2 (Version None)
Quarter: 2012Q3

REPORT INFORMATION
  Report Type: 
  Country: None (occurrence: None)
  Receive Date: 20120816
  Receipt Date: 20120814
  Transmission Date: 20120928
  Serious: Yes (Hospitalization, Disabling)
  Sender: FDA-Public Use
  Company Number: CA-ROCHE-1101737

PATIENT
  Age: 83 Year
  Sex: Male
  Weight: 60.836 kg

DRUGS (7)
  1. XELODA [Suspect]
     Indication: PRODUCT USED FOR UNKNOWN INDICATION
     Route: 048
  2. METOCLOPRAMIDE [Concomitant]
     Route: 048
  3. SENNA-MINT WAF [Concomitant]
     Route: 065
  4. FLOMAX (CANADA) [Concomitant]
     Route: 065
  5. LOPERAMIDE [Concomitant]
     Route: 048
  6. CIPROFLOXACIN HCL [Concomitant]
     Route: 065
  7. MAGIC MOUTH WASH (INGREDIENTS UNK) [Concomitant]
     Route: 065

REACTIONS (9)
  - BURNING SENSATION [None]
  - DYSPEPSIA [None]
  - EATING DISORDER [None]
  - EPIDERMOLYSIS [None]
  - STOMATITIS [None]
  - ERYTHEMA [None]
  - PANCYTOPENIA [None]
  - PYREXIA [None]
  - SKIN EXFOLIATION [None]
